FAERS Safety Report 7629615-4 (Version None)
Quarter: 2011Q3

REPORT INFORMATION
  Report Type: 
  Country: None (occurrence: None)
  Receive Date: 20110722
  Receipt Date: 20110713
  Transmission Date: 20111222
  Serious: Yes (Other)
  Sender: FDA-Public Use
  Company Number: US-ROCHE-772928

PATIENT
  Sex: Male
  Weight: 54.4 kg

DRUGS (3)
  1. ACCUTANE [Suspect]
     Indication: ACNE
     Route: 065
     Dates: start: 20031001, end: 20040401
  2. ACCUTANE [Suspect]
     Route: 065
     Dates: start: 20041201, end: 20050501
  3. AMNESTEEM [Suspect]
     Route: 065

REACTIONS (3)
  - INTESTINAL OBSTRUCTION [None]
  - CROHN'S DISEASE [None]
  - INFLAMMATORY BOWEL DISEASE [None]
